FAERS Safety Report 6135708-3 (Version None)
Quarter: 2009Q1

REPORT INFORMATION
  Report Type: 
  Country: None (occurrence: None)
  Receive Date: 20090327
  Receipt Date: 20090319
  Transmission Date: 20090719
  Serious: Yes (Hospitalization, Other)
  Sender: FDA-Public Use
  Company Number: US-AMGEN-QUU338142

PATIENT
  Sex: Female

DRUGS (24)
  1. NEUPOGEN [Suspect]
     Indication: NEUTROPENIA
     Route: 058
     Dates: start: 20080427
  2. CALCIUM CARBONATE [Concomitant]
     Route: 048
  3. FOLIC ACID [Concomitant]
  4. LEVOFLOXACIN [Concomitant]
  5. LEVOTHYROXINE [Concomitant]
     Route: 048
  6. LISINOPRIL [Concomitant]
     Route: 048
  7. METOPROLOL [Concomitant]
     Route: 048
  8. MULTIPLE VITAMINS [Concomitant]
  9. OMEPRAZOLE [Concomitant]
     Route: 048
  10. BECLOMETHASONE DIPROPIONATE [Concomitant]
     Route: 048
  11. SODIUM BICARBONATE [Concomitant]
     Route: 048
  12. SODIUM CHLORIDE [Concomitant]
     Route: 042
  13. POTASSIUM CHLORIDE [Concomitant]
     Route: 042
  14. VALGANCICLOVIR HCL [Concomitant]
  15. VORICONAZOLE [Concomitant]
     Route: 048
  16. MAGNESIUM SULFATE [Concomitant]
     Route: 042
  17. VERSED [Concomitant]
     Route: 042
     Dates: start: 20090301, end: 20090313
  18. FENTANYL-25 [Concomitant]
     Route: 042
     Dates: start: 20090313, end: 20090313
  19. AMILORIDE HYDROCHLORIDE [Concomitant]
     Route: 048
  20. TUMS [Concomitant]
     Route: 048
  21. VITAMIN D [Concomitant]
     Route: 048
  22. SYNTHROID [Concomitant]
     Route: 048
  23. DAPTOMYCIN [Concomitant]
     Route: 042
  24. PENTAMIDINE [Concomitant]

REACTIONS (15)
  - ANAEMIA [None]
  - ATELECTASIS [None]
  - CHOLECYSTITIS [None]
  - CHOLELITHIASIS [None]
  - COLITIS [None]
  - CYTOMEGALOVIRUS VIRAEMIA [None]
  - DIABETES MELLITUS [None]
  - GASTROINTESTINAL HAEMORRHAGE [None]
  - GRAFT VERSUS HOST DISEASE [None]
  - HYPERBILIRUBINAEMIA [None]
  - NEUTROPENIA [None]
  - PNEUMONIA FUNGAL [None]
  - STRESS [None]
  - THROMBOCYTOPENIA [None]
  - TRANSAMINASES INCREASED [None]
